FAERS Safety Report 11148582 (Version 1)
Quarter: 2015Q2

REPORT INFORMATION
  Report Type: Spontaneous
  Country: US (occurrence: None)
  Receive Date: 20150527
  Receipt Date: 20150527
  Transmission Date: 20150821
  Serious: Yes (Disabling, Other)
  Sender: FDA-Public Use
  Company Number: 2015-11372

PATIENT
  Age: 89 Year
  Sex: Female

DRUGS (16)
  1. ECOTRIN [Concomitant]
     Active Substance: ASPIRIN
  2. ALIGN (BIFIDOBACTERIUM INFANTS) [Concomitant]
  3. EYLEA [Suspect]
     Active Substance: AFLIBERCEPT
     Indication: NEOVASCULAR AGE-RELATED MACULAR DEGENERATION
     Dosage: OS, INTRAOCULAR
     Route: 031
     Dates: start: 201504
  4. FOCUS MACULAPROL (ASCORBIC ACID, BETACAROTENE, CUPRIC OXIDE, DL-ALPHA TOCOPHERYL ACETATE, ZINC OXIDE) [Concomitant]
  5. AZELASTINE [Concomitant]
     Active Substance: AZELASTINE
  6. TYLENOL [Concomitant]
     Active Substance: ACETAMINOPHEN
  7. EPINASTINE [Concomitant]
     Active Substance: EPINASTINE
  8. SIMVASTATIN. [Concomitant]
     Active Substance: SIMVASTATIN
  9. PROTONIX (OMEPRAZOLE) [Concomitant]
  10. ALPRAZOLAM. [Concomitant]
     Active Substance: ALPRAZOLAM
  11. FLOVENT HFA (FLUTICASONE PROPIONATE) [Concomitant]
  12. LASIX [Concomitant]
     Active Substance: FUROSEMIDE
  13. LOMOTIL (ATROPINE SULFATE, DIPHENOXYLATE HYDROCHLORIDE) [Concomitant]
  14. OXYBUTYNIN [Concomitant]
     Active Substance: OXYBUTYNIN
  15. RAMIPRIL. [Concomitant]
     Active Substance: RAMIPRIL
  16. ZYRTEC [Concomitant]
     Active Substance: CETIRIZINE HYDROCHLORIDE

REACTIONS (5)
  - Eye pain [None]
  - Diarrhoea [None]
  - Blindness transient [None]
  - Eye pruritus [None]
  - Eye irritation [None]

NARRATIVE: CASE EVENT DATE: 201504
